FAERS Safety Report 21733193 (Version 1)
Quarter: 2022Q4

REPORT INFORMATION
  Report Type: Spontaneous
  Country: ES (occurrence: ES)
  Receive Date: 20221215
  Receipt Date: 20221215
  Transmission Date: 20230113
  Serious: Yes (Hospitalization)
  Sender: FDA-Public Use
  Company Number: None

PATIENT
  Age: 65 Year
  Sex: Female

DRUGS (6)
  1. PRASUGREL [Interacting]
     Active Substance: PRASUGREL
     Indication: Thrombosis prophylaxis
     Dosage: 10 MILLIGRAM, QD
     Route: 048
     Dates: start: 202005, end: 20220829
  2. ASPIRIN [Interacting]
     Active Substance: ASPIRIN
     Indication: Thrombosis prophylaxis
     Dosage: 100 MILLIGRAM, QD, 30 TABLETS
     Route: 048
     Dates: start: 202005, end: 20220829
  3. LOSARTAN [Concomitant]
     Active Substance: LOSARTAN
     Indication: Hypertension
     Dosage: 12.5 MILLIGRAM, QD
     Route: 048
     Dates: start: 202005
  4. JARDIANCE [Concomitant]
     Active Substance: EMPAGLIFLOZIN
     Indication: Diabetes mellitus
     Dosage: 10 MILLIGRAM, QD, 30 TABLETS
     Route: 048
     Dates: start: 202005
  5. ATORVASTATIN CALCIUM\EZETIMIBE [Concomitant]
     Active Substance: ATORVASTATIN CALCIUM\EZETIMIBE
     Indication: Dyslipidaemia
     Dosage: UNK, 10 MG/80 MG, 30 TABLETS
     Route: 048
     Dates: start: 20220603
  6. METFORMIN HYDROCHLORIDE [Concomitant]
     Active Substance: METFORMIN HYDROCHLORIDE
     Indication: Diabetes mellitus
     Dosage: 850 MILLIGRAM,QD
     Route: 048
     Dates: start: 201703

REACTIONS (2)
  - Lower gastrointestinal haemorrhage [Recovered/Resolved]
  - Drug interaction [Unknown]

NARRATIVE: CASE EVENT DATE: 20220829
